FAERS Safety Report 24793559 (Version 2)
Quarter: 2025Q1

REPORT INFORMATION
  Report Type: Spontaneous
  Country: US (occurrence: US)
  Receive Date: 20241231
  Receipt Date: 20250108
  Transmission Date: 20250408
  Serious: No
  Sender: Haleon PLC
  Company Number: US-HALEON-2219645

PATIENT
  Age: 47 Year
  Sex: Female

DRUGS (2)
  1. SENSODYNE PRONAMEL [Suspect]
     Active Substance: POTASSIUM NITRATE\SODIUM FLUORIDE
     Indication: Product used for unknown indication
  2. SENSODYNE PRONAMEL [Suspect]
     Active Substance: POTASSIUM NITRATE\SODIUM FLUORIDE

REACTIONS (6)
  - Oral discomfort [Unknown]
  - Product complaint [Unknown]
  - Hyperaesthesia teeth [Unknown]
  - Symptom recurrence [Unknown]
  - Gingival pain [Unknown]
  - Gingival discomfort [Unknown]
